FAERS Safety Report 10005125 (Version 2)
Quarter: 2014Q1

REPORT INFORMATION
  Report Type: Report from Study
  Country: JP (occurrence: JP)
  Receive Date: 20140312
  Receipt Date: 20140328
  Transmission Date: 20141002
  Serious: Yes (Death)
  Sender: FDA-Public Use
  Company Number: JP-TAKEDA-2014TUS001714

PATIENT
  Sex: 0

DRUGS (7)
  1. FEBURIC [Suspect]
     Indication: GOUT
     Dosage: 10 MG, QD
     Route: 048
     Dates: start: 20121120, end: 20131124
  2. BASEN [Concomitant]
     Indication: DIABETES MELLITUS
     Dosage: 0.9 MG, QD
     Route: 048
     Dates: start: 20130523, end: 20131124
  3. AMARYL [Concomitant]
     Indication: DIABETES MELLITUS
     Dosage: 2 MG, QD
     Route: 048
     Dates: start: 20130523, end: 20131124
  4. WARFARIN [Concomitant]
     Indication: MYOCARDIAL INFARCTION
     Dosage: 1 MG, QD
     Route: 048
     Dates: start: 20130523, end: 20131124
  5. FRANDOL S [Concomitant]
     Indication: ANGINA PECTORIS
     Dosage: 40 MG, QD
     Route: 048
     Dates: start: 20130523, end: 20131124
  6. ARTIST [Concomitant]
     Indication: HYPERTENSION
     Dosage: 2.5 MG, QD
     Route: 048
     Dates: end: 20131124
  7. ALDACTONE A [Concomitant]
     Indication: HYPERTENSION
     Dosage: 250 MG, QD
     Route: 048
     Dates: end: 20131124

REACTIONS (1)
  - Death [Fatal]
